FAERS Safety Report 9706934 (Version 1)
Quarter: 2013Q4

REPORT INFORMATION
  Report Type: Spontaneous
  Country: US (occurrence: None)
  Receive Date: 20131122
  Receipt Date: 20131122
  Transmission Date: 20140711
  Serious: Yes (Other)
  Sender: FDA-Public Use
  Company Number: None

PATIENT
  Age: 17 Year
  Sex: Male
  Weight: 53.5 kg

DRUGS (1)
  1. DEPAKOTE SPRINKLE [Suspect]
     Indication: CONVULSION
     Dosage: 3 CAPSULES TID G-TUBE
     Route: 048
     Dates: start: 201308

REACTIONS (2)
  - Convulsion [None]
  - Product substitution issue [None]
